FAERS Safety Report 6101954-8 (Version None)
Quarter: 2009Q1

REPORT INFORMATION
  Report Type: 
  Country: None (occurrence: None)
  Receive Date: 20090303
  Receipt Date: 20090303
  Transmission Date: 20090719
  Serious: Yes (Other)
  Sender: FDA-Public Use
  Company Number: None

PATIENT
  Age: 66 Year
  Sex: Female
  Weight: 62.5964 kg

DRUGS (1)
  1. SEROQUEL [Suspect]
     Indication: BIPOLAR DISORDER
     Dosage: 50MG 1 AT BEDTIME PO
     Route: 048
     Dates: start: 20070101, end: 20090101

REACTIONS (2)
  - ABASIA [None]
  - DYSKINESIA [None]
